FAERS Safety Report 5464068-6 (Version None)
Quarter: 2007Q3

REPORT INFORMATION
  Report Type: 
  Country: None (occurrence: None)
  Receive Date: 20070921
  Receipt Date: 20070912
  Transmission Date: 20080115
  Serious: Yes (Other)
  Sender: FDA-Public Use
  Company Number: US-JNJFOC-20070902731

PATIENT
  Age: 36 Year
  Sex: Female
  Weight: 94.8 kg

DRUGS (2)
  1. TOPAMAX [Suspect]
     Indication: MIGRAINE PROPHYLAXIS
     Route: 048
  2. XANAX [Concomitant]
     Indication: PANIC ATTACK
     Route: 048

REACTIONS (1)
  - VENTRICULAR EXTRASYSTOLES [None]
